FAERS Safety Report 21873489 (Version 2)
Quarter: 2023Q1

REPORT INFORMATION
  Report Type: Spontaneous
  Country: DE (occurrence: DE)
  Receive Date: 20230117
  Receipt Date: 20230206
  Transmission Date: 20230417
  Serious: Yes (Other)
  Sender: FDA-Public Use
  Company Number: DE-BRISTOL-MYERS SQUIBB COMPANY-2023-005454

PATIENT
  Age: 82 Year
  Sex: Female
  Weight: 69 kg

DRUGS (12)
  1. DEXAMETHASONE [Suspect]
     Active Substance: DEXAMETHASONE
     Indication: Plasma cell myeloma
     Dosage: 20 MG, QD
     Route: 065
     Dates: start: 20210605, end: 20221116
  2. DARATUMUMAB [Suspect]
     Active Substance: DARATUMUMAB
     Indication: Plasma cell myeloma
     Dosage: 8 MG/KG
     Route: 065
     Dates: start: 20210520, end: 20210521
  3. DARATUMUMAB [Suspect]
     Active Substance: DARATUMUMAB
     Dosage: 16 MG/KG, QW (WEEKLY (DAY 1,8,15,21 OF A 28 DAY CYCLE))
     Route: 065
     Dates: start: 20210611
  4. DARATUMUMAB [Suspect]
     Active Substance: DARATUMUMAB
     Dosage: 16 MG/KG, QW (WEEKLY (DAY 1,8,15,21 OF A 28 DAY CYCLE))
     Route: 065
     Dates: start: 20210705, end: 20210802
  5. DARATUMUMAB [Suspect]
     Active Substance: DARATUMUMAB
     Dosage: 16 MG/KG, BIW (BIWEEKLY (DAY 1,15 OF A 28D AY CYCLE))
     Route: 065
     Dates: start: 20210819, end: 20211125
  6. DARATUMUMAB [Suspect]
     Active Substance: DARATUMUMAB
     Dosage: 1056 MG, QD (DATE OF LAST APPLICATION PRIOR EVENT: 20-OCT-2022 AND LAST DOSE PRIOR EVENT 1072 MG)
     Route: 065
     Dates: start: 20211223
  7. DARATUMUMAB [Suspect]
     Active Substance: DARATUMUMAB
     Dosage: 16 MG/KG, Q4W (EVERY 4 WEEKS (DAY 1 OF A 28 DAY CYCLE))
     Route: 065
     Dates: start: 20211223, end: 20220224
  8. DARATUMUMAB [Suspect]
     Active Substance: DARATUMUMAB
     Dosage: 16 MG/KG, Q4W (EVERY 4 WEEKS (DAY 1 OF A 28 DAY CYCLE)0
     Route: 065
     Dates: start: 20220407, end: 20221117
  9. REVLIMID [Suspect]
     Active Substance: LENALIDOMIDE
     Indication: Plasma cell myeloma
     Dosage: 25 MG, QD (DAY 1-14 OF A 21 DAY CYCLE)
     Route: 065
     Dates: start: 20210517, end: 20210521
  10. REVLIMID [Suspect]
     Active Substance: LENALIDOMIDE
     Dosage: 10 MG, QD (DAY 1-21 OF A 28 DAY CYCLE)
     Route: 065
     Dates: start: 20210605, end: 20210625
  11. REVLIMID [Suspect]
     Active Substance: LENALIDOMIDE
     Dosage: 10 MG, QD (DAY 1-21 OF A 28 DAY CYCLE)
     Route: 065
     Dates: start: 20210705, end: 20220117
  12. REVLIMID [Suspect]
     Active Substance: LENALIDOMIDE
     Dosage: 5 MG, QD (DAY 1-21 OF A 28 DAY CYCLE)
     Route: 065
     Dates: start: 20220406, end: 20221116

REACTIONS (2)
  - Thrombocytopenia [Recovering/Resolving]
  - Off label use [Unknown]

NARRATIVE: CASE EVENT DATE: 20221117
